FAERS Safety Report 13824588 (Version 35)
Quarter: 2020Q4

REPORT INFORMATION
  Report Type: Spontaneous
  Country: CA (occurrence: CA)
  Receive Date: 20170802
  Receipt Date: 20201201
  Transmission Date: 20210113
  Serious: Yes (Other)
  Sender: FDA-Public Use
  Company Number: CA-CELLTRION INC.-2017CA008092

PATIENT

DRUGS (38)
  1. INFLECTRA [Suspect]
     Active Substance: INFLIXIMAB-DYYB
     Dosage: 400 MG, EVERY 4 WEEKS
     Route: 042
     Dates: start: 20170915, end: 20170915
  2. INFLECTRA [Suspect]
     Active Substance: INFLIXIMAB-DYYB
     Dosage: 400 MG, 0, 2, THEN EVERY 4 WEEKS (RE-INDUCTION)
     Route: 042
     Dates: start: 20191004
  3. PREDNISONE. [Concomitant]
     Active Substance: PREDNISONE
     Dosage: 40 MG, ONCE A DAY
     Route: 065
  4. INFLECTRA [Suspect]
     Active Substance: INFLIXIMAB-DYYB
     Dosage: 400 MG, EVERY 4 WEEKS
     Route: 042
     Dates: start: 20190516
  5. INFLECTRA [Suspect]
     Active Substance: INFLIXIMAB-DYYB
     Dosage: 400 MG WEEK 0, 2, THEN EVERY 4 WEEKS (REINDUCTION)
     Route: 042
     Dates: start: 20200723
  6. INFLECTRA [Suspect]
     Active Substance: INFLIXIMAB-DYYB
     Dosage: 400 MG, EVERY 4 WEEKS
     Route: 042
     Dates: start: 20180831
  7. INFLECTRA [Suspect]
     Active Substance: INFLIXIMAB-DYYB
     Dosage: 400 MG, EVERY 4 WEEKS
     Route: 042
     Dates: start: 20190906
  8. INFLECTRA [Suspect]
     Active Substance: INFLIXIMAB-DYYB
     Dosage: 400 MG, 0, 2, THEN EVERY 4 WEEKS
     Route: 042
     Dates: start: 20200429
  9. PREDNISONE. [Concomitant]
     Active Substance: PREDNISONE
     Dosage: 20 MG, UNK (STOP DATE: 2017)
     Route: 065
  10. VITAMIN C [Concomitant]
     Active Substance: ASCORBIC ACID
     Dosage: 1000 MG, DAILY
     Route: 048
  11. VITAMIN C [Concomitant]
     Active Substance: ASCORBIC ACID
     Dosage: 1000 MG, DAILY
     Route: 065
  12. VITAMIN D [Concomitant]
     Active Substance: VITAMIN D NOS
     Dosage: 10000 IU, DAILY
     Route: 065
  13. VITAMIN B12 [Concomitant]
     Active Substance: CYANOCOBALAMIN
     Dosage: 1 TABLET, DAILY
     Route: 065
  14. VITAMINS NOS [Concomitant]
     Active Substance: VITAMINS
     Dosage: UNK
     Route: 065
  15. INFLECTRA [Suspect]
     Active Substance: INFLIXIMAB-DYYB
     Dosage: 400 MG, AT 0, 2 THEN EVERY 4 WEEKS
     Route: 042
     Dates: start: 20171010
  16. INFLECTRA [Suspect]
     Active Substance: INFLIXIMAB-DYYB
     Dosage: 400 MG, EVERY 4 WEEKS
     Route: 042
     Dates: start: 20181002
  17. INFLECTRA [Suspect]
     Active Substance: INFLIXIMAB-DYYB
     Dosage: 400 MG, EVERY 4 WEEKS
     Route: 042
     Dates: start: 20190808
  18. PREDNISONE. [Concomitant]
     Active Substance: PREDNISONE
     Dosage: 40 MG, UNK
     Route: 065
  19. INFLECTRA [Suspect]
     Active Substance: INFLIXIMAB-DYYB
     Dosage: 400 MG, EVERY 4 WEEKS
     Route: 042
     Dates: start: 20180410
  20. INFLECTRA [Suspect]
     Active Substance: INFLIXIMAB-DYYB
     Dosage: 400 MG, EVERY 4 WEEKS
     Route: 042
     Dates: start: 20180703
  21. INFLECTRA [Suspect]
     Active Substance: INFLIXIMAB-DYYB
     Dosage: 400 MG, EVERY 4 WEEKS
     Route: 042
     Dates: start: 20181228
  22. INFLECTRA [Suspect]
     Active Substance: INFLIXIMAB-DYYB
     Dosage: 400 MG, EVERY 4 WEEKS
     Route: 042
     Dates: start: 20190122
  23. CALCIUM + MAGNESIUM [Concomitant]
     Active Substance: CALCIUM\MAGNESIUM
     Indication: SUPPLEMENTATION THERAPY
     Dosage: UNK
     Route: 065
  24. INFLECTRA [Suspect]
     Active Substance: INFLIXIMAB-DYYB
     Indication: COLITIS ULCERATIVE
     Dosage: 400 MG, AT 0, 2, 6 WEEKS, THEN EVERY 8 WEEKS
     Route: 042
     Dates: start: 20170504, end: 20170817
  25. INFLECTRA [Suspect]
     Active Substance: INFLIXIMAB-DYYB
     Dosage: 400 MG, EVERY 4 WEEKS
     Route: 042
     Dates: start: 20181031
  26. INFLECTRA [Suspect]
     Active Substance: INFLIXIMAB-DYYB
     Dosage: 400 MG, EVERY 4 WEEKS
     Route: 042
     Dates: start: 20181127
  27. INFLECTRA [Suspect]
     Active Substance: INFLIXIMAB-DYYB
     Dosage: 400 MG, EVERY 4 WEEKS
     Route: 042
     Dates: start: 20190219
  28. INFLECTRA [Suspect]
     Active Substance: INFLIXIMAB-DYYB
     Dosage: 400 MG, 0, 2, THEN EVERY 4 WEEKS
     Route: 042
     Dates: start: 20191128
  29. INFLECTRA [Suspect]
     Active Substance: INFLIXIMAB-DYYB
     Dosage: 400 MG WEEK 0, 2, THEN EVERY 4 WEEKS (REINDUCTION)
     Route: 042
     Dates: start: 20200917
  30. IRON [Concomitant]
     Active Substance: IRON
     Indication: COLITIS ULCERATIVE
     Dosage: 180 MG, DAILY
     Route: 048
  31. OMEGA 3 [Concomitant]
     Active Substance: OMEGA-3 FATTY ACIDS
     Dosage: 1 TABLET, DAILY
     Route: 065
  32. INFLECTRA [Suspect]
     Active Substance: INFLIXIMAB-DYYB
     Dosage: 400 MG, EVERY 4 WEEKS
     Route: 042
     Dates: start: 20180731
  33. INFLECTRA [Suspect]
     Active Substance: INFLIXIMAB-DYYB
     Dosage: 400 MG, EVERY 4 WEEKS
     Route: 042
     Dates: start: 20190122
  34. INFLECTRA [Suspect]
     Active Substance: INFLIXIMAB-DYYB
     Dosage: 400 MG, EVERY 4 WEEKS
     Route: 042
     Dates: start: 20190712
  35. INFLECTRA [Suspect]
     Active Substance: INFLIXIMAB-DYYB
     Dosage: 400 MG, 0, 2, THEN EVERY 4 WEEKS
     Route: 042
     Dates: start: 20191031
  36. INFLECTRA [Suspect]
     Active Substance: INFLIXIMAB-DYYB
     Dosage: 400 MG, 0, 2, THEN EVERY 4 WEEKS
     Route: 042
     Dates: start: 20191230
  37. INFLECTRA [Suspect]
     Active Substance: INFLIXIMAB-DYYB
     Dosage: 400 MG, 0, 2, THEN EVERY 4 WEEKS
     Route: 042
     Dates: start: 20200226
  38. IRON [Concomitant]
     Active Substance: IRON
     Dosage: 180 MG, DAILY
     Route: 065

REACTIONS (46)
  - Nephrolithiasis [Unknown]
  - Diarrhoea [Unknown]
  - Fall [Unknown]
  - Drug level decreased [Unknown]
  - Abdominal pain [Recovered/Resolved]
  - Burning sensation [Recovered/Resolved]
  - Intervertebral disc protrusion [Unknown]
  - Diverticulum intestinal [Unknown]
  - Herpes zoster [Recovered/Resolved]
  - Haematochezia [Recovered/Resolved]
  - Arthralgia [Unknown]
  - Chromaturia [Unknown]
  - Pulmonary granuloma [Unknown]
  - Heart rate decreased [Not Recovered/Not Resolved]
  - Off label use [Unknown]
  - Ankylosing spondylitis [Unknown]
  - Faecal calprotectin increased [Unknown]
  - Abdominal tenderness [Not Recovered/Not Resolved]
  - Oropharyngeal pain [Unknown]
  - Drug level increased [Unknown]
  - Sinusitis [Recovered/Resolved]
  - Abnormal faeces [Recovered/Resolved]
  - Blood bilirubin abnormal [Unknown]
  - Oral pain [Recovered/Resolved]
  - Weight increased [Unknown]
  - Haematuria [Recovering/Resolving]
  - Flank pain [Recovering/Resolving]
  - Intentional product use issue [Unknown]
  - Tooth abscess [Recovered/Resolved]
  - Electrocardiogram ST segment depression [Unknown]
  - Pyrexia [Unknown]
  - Back pain [Recovered/Resolved]
  - White blood cells urine positive [Unknown]
  - Alanine aminotransferase abnormal [Unknown]
  - Hydronephrosis [Unknown]
  - Hepatic cyst [Unknown]
  - Weight decreased [Unknown]
  - Disease recurrence [Unknown]
  - Condition aggravated [Recovered/Resolved]
  - Feeling abnormal [Unknown]
  - Abdominal discomfort [Not Recovered/Not Resolved]
  - Vertigo positional [Recovering/Resolving]
  - Musculoskeletal stiffness [Recovered/Resolved]
  - Influenza [Unknown]
  - Fatigue [Unknown]
  - Inappropriate schedule of product administration [Unknown]

NARRATIVE: CASE EVENT DATE: 2017
